FAERS Safety Report 5695026-4 (Version None)
Quarter: 2008Q2

REPORT INFORMATION
  Report Type: 
  Country: None (occurrence: None)
  Receive Date: 20080404
  Receipt Date: 20080326
  Transmission Date: 20081010
  Serious: Yes (Other)
  Sender: FDA-Public Use
  Company Number: JP-ROCHE-524401

PATIENT
  Sex: Male
  Weight: 3 kg

DRUGS (2)
  1. RIVOTRIL [Suspect]
     Indication: EPILEPSY
     Dosage: DOSE FORM: FINE GRANULATE.
     Route: 064
     Dates: start: 19950826
  2. SELENICA-R [Suspect]
     Indication: EPILEPSY
     Route: 064

REACTIONS (2)
  - DRUG EXPOSURE DURING PREGNANCY [None]
  - PSYCHOMOTOR SKILLS IMPAIRED [None]
